FAERS Safety Report 4881991-1 (Version None)
Quarter: 2006Q1

REPORT INFORMATION
  Report Type: 
  Country: None (occurrence: None)
  Receive Date: 20060117
  Receipt Date: 20060104
  Transmission Date: 20060701
  Serious: Yes (Hospitalization)
  Sender: FDA-Public Use
  Company Number: PHRM2006FR00454

PATIENT
  Age: 51 Year
  Sex: Female

DRUGS (2)
  1. GLEEVEC [Suspect]
     Indication: CHRONIC MYELOID LEUKAEMIA
     Dosage: 400 MG, DAILY
     Route: 048
     Dates: start: 20030202, end: 20040401
  2. GLEEVEC [Suspect]
     Dosage: 300 MG, DAILY
     Route: 048
     Dates: start: 20040401, end: 20050222

REACTIONS (13)
  - ARTHRALGIA [None]
  - ASTHMA [None]
  - BRONCHIOLITIS [None]
  - COUGH [None]
  - DYSPNOEA EXERTIONAL [None]
  - FACE OEDEMA [None]
  - MUSCLE SPASMS [None]
  - OBSTRUCTIVE AIRWAYS DISORDER [None]
  - OEDEMA PERIPHERAL [None]
  - PO2 DECREASED [None]
  - PYREXIA [None]
  - VENTILATION/PERFUSION SCAN ABNORMAL [None]
  - WHEEZING [None]
